FAERS Safety Report 6231773-3 (Version None)
Quarter: 2009Q2

REPORT INFORMATION
  Report Type: 
  Country: None (occurrence: None)
  Receive Date: 20090616
  Receipt Date: 20090604
  Transmission Date: 20091009
  Serious: Yes (Other)
  Sender: FDA-Public Use
  Company Number: PHHY2009JP22234

PATIENT
  Age: 76 Year
  Sex: Female

DRUGS (9)
  1. AMN107 AMN+CAP [Suspect]
     Indication: CHRONIC MYELOID LEUKAEMIA
     Dosage: 200 MG DAILY
     Route: 048
     Dates: start: 20090323, end: 20090518
  2. ALLEGRA [Concomitant]
     Dosage: 15 MG, UNK
     Dates: start: 20080507
  3. TAKEPRON [Concomitant]
     Dosage: 15 MG, UNK
     Dates: start: 20080216
  4. PAXIL [Concomitant]
     Dosage: 2.1 MG, UNK
     Dates: start: 20090421, end: 20090518
  5. DUROTEP [Concomitant]
  6. NOVAMIN [Concomitant]
     Dosage: 10 MG, UNK
  7. SERENACE [Concomitant]
     Dosage: 0.75 MG, UNK
  8. GRAMALIL [Concomitant]
     Dosage: 25 MG, UNK
  9. AKINETON [Suspect]
     Dosage: 1 MG, UNK

REACTIONS (2)
  - HYPERPHOSPHATASAEMIA [None]
  - MALIGNANT NEOPLASM PROGRESSION [None]
